FAERS Safety Report 8392725-0 (Version None)
Quarter: 2012Q2

REPORT INFORMATION
  Report Type: 
  Country: None (occurrence: None)
  Receive Date: 20120529
  Receipt Date: 20120517
  Transmission Date: 20120825
  Serious: Yes (Other)
  Sender: FDA-Public Use
  Company Number: US-ELI_LILLY_AND_COMPANY-US201205008195

PATIENT
  Sex: Female

DRUGS (2)
  1. HUMALOG [Suspect]
     Dosage: UNK
  2. LANTUS [Concomitant]

REACTIONS (11)
  - ABNORMAL SENSATION IN EYE [None]
  - OCULAR HYPERAEMIA [None]
  - OEDEMA PERIPHERAL [None]
  - ULCER [None]
  - FACIAL PAIN [None]
  - EYE PAIN [None]
  - MALAISE [None]
  - DRUG DOSE OMISSION [None]
  - CHEST PAIN [None]
  - ERYTHEMA [None]
  - VISUAL ACUITY REDUCED [None]
